FAERS Safety Report 5521260-X (Version None)
Quarter: 2007Q4

REPORT INFORMATION
  Report Type: 
  Country: None (occurrence: None)
  Receive Date: 20071119
  Receipt Date: 20071114
  Transmission Date: 20080405
  Serious: Yes (Hospitalization)
  Sender: FDA-Public Use
  Company Number: JP-ROXANE LABORATORIES, INC-2007-BP-24514RO

PATIENT
  Age: 24 Year
  Sex: Male

DRUGS (7)
  1. ZONISAMIDE [Suspect]
     Indication: EPILEPSY
  2. CARBAMAZEPINE [Suspect]
     Indication: EPILEPSY
  3. CARBAMAZEPINE [Suspect]
  4. CLONAZEPAM [Suspect]
  5. RISPERIDONE [Concomitant]
     Indication: AGGRESSION
  6. PHENYTOIN [Concomitant]
     Indication: EPILEPSY
     Route: 042
  7. DANTROLENE SODIUM [Concomitant]
     Route: 042

REACTIONS (12)
  - AGGRESSION [None]
  - AGITATION [None]
  - BLOOD CREATINE PHOSPHOKINASE INCREASED [None]
  - CHOREOATHETOSIS [None]
  - DYSPHAGIA [None]
  - HYPERHIDROSIS [None]
  - INCONTINENCE [None]
  - MUSCLE RIGIDITY [None]
  - NEUROLEPTIC MALIGNANT SYNDROME [None]
  - PYREXIA [None]
  - SALIVARY HYPERSECRETION [None]
  - SOMNOLENCE [None]
